FAERS Safety Report 9631601 (Version 2)
Quarter: 2013Q4

REPORT INFORMATION
  Report Type: Spontaneous
  Country: CA (occurrence: None)
  Receive Date: 20131016
  Receipt Date: 20131211
  Transmission Date: 20140711
  Serious: Yes (Hospitalization)
  Sender: FDA-Public Use
  Company Number: UTC-037873

PATIENT
  Age: 65 Year
  Sex: Female

DRUGS (1)
  1. REMODULIN [Suspect]
     Indication: PULMONARY ARTERIAL HYPERTENSION
     Route: 058
     Dates: start: 20130809, end: 20130926

REACTIONS (6)
  - Sepsis [None]
  - Infusion site cellulitis [None]
  - Hypotension [None]
  - Confusional state [None]
  - Dizziness postural [None]
  - Fall [None]
